FAERS Safety Report 19264247 (Version 1)
Quarter: 2021Q2

REPORT INFORMATION
  Report Type: Spontaneous
  Country: US (occurrence: US)
  Receive Date: 20210516
  Receipt Date: 20210516
  Transmission Date: 20210717
  Serious: Yes (Other)
  Sender: FDA-Public Use
  Company Number: None

PATIENT
  Age: 97 Year
  Sex: Female
  Weight: 67.5 kg

DRUGS (6)
  1. KISQALI [Suspect]
     Active Substance: RIBOCICLIB
     Indication: BREAST CANCER
     Route: 048
     Dates: start: 20210326, end: 20210416
  2. CELEBREX [Concomitant]
     Active Substance: CELECOXIB
     Dates: start: 20210324
  3. XGEVA [Concomitant]
     Active Substance: DENOSUMAB
     Dates: start: 20210324
  4. DILTAZEM CD 120MG [Concomitant]
     Dates: start: 20210226
  5. SYNTHROID 0.112 MG [Concomitant]
     Dates: start: 20210324
  6. FASLODEX [Concomitant]
     Active Substance: FULVESTRANT
     Dates: start: 20210324

REACTIONS (2)
  - Blood iron decreased [None]
  - Vitamin B12 decreased [None]

NARRATIVE: CASE EVENT DATE: 20210503
